FAERS Safety Report 7943560-6 (Version None)
Quarter: 2011Q4

REPORT INFORMATION
  Report Type: 
  Country: None (occurrence: None)
  Receive Date: 20111128
  Receipt Date: 20111121
  Transmission Date: 20120403
  Serious: Yes (Hospitalization, Congenital Anomaly, Other)
  Sender: FDA-Public Use
  Company Number: GXKR2011DE003378

PATIENT

DRUGS (3)
  1. LAMOTRIGINE [Suspect]
     Dosage: MATERNAL DOSE: 350 MG, QD
     Route: 064
  2. KALIUM JODATUM [Concomitant]
     Dosage: MATERNAL DOSE: 0.2 MG, QD
     Route: 064
  3. FOLIC ACID [Concomitant]
     Dosage: MATERNAL DOSE: 0.4 [MG/D ]
     Route: 064

REACTIONS (3)
  - CONGENITAL CHOROID PLEXUS CYST [None]
  - SOMNOLENCE NEONATAL [None]
  - FOETAL EXPOSURE DURING PREGNANCY [None]
